FAERS Safety Report 7138330-5 (Version None)
Quarter: 2010Q4

REPORT INFORMATION
  Report Type: 
  Country: None (occurrence: None)
  Receive Date: 20101202
  Receipt Date: 20101202
  Transmission Date: 20110411
  Serious: Yes (Death)
  Sender: FDA-Public Use
  Company Number: None

PATIENT
  Sex: Female
  Weight: 55.79 kg

DRUGS (15)
  1. PEMETREXED [Suspect]
     Indication: NON-SMALL CELL LUNG CANCER
     Dosage: PEMETREXED EVERY 21 DAYS IV
     Route: 042
     Dates: start: 20100702, end: 20101021
  2. ERLOTINIB [Suspect]
     Indication: NON-SMALL CELL LUNG CANCER
     Dosage: ERLOTINIB QD FOR 19 DAYS PO
     Route: 048
     Dates: start: 20100703, end: 20101108
  3. FOLIC ACID [Concomitant]
  4. OXYCODONE [Concomitant]
  5. OXYCODONE [Concomitant]
  6. ESOMEPRAZOLE [Concomitant]
  7. PROMETHAZINE [Concomitant]
  8. ONDANSETRON [Concomitant]
  9. ENOXPRIN [Concomitant]
  10. DUCOSATE [Concomitant]
  11. OXYGEN AMOXICILLIN-CLAVULANATE [Concomitant]
  12. METOCLOPRAMIDE [Concomitant]
  13. LORAZEPAM [Concomitant]
  14. DEXAMETHASONE [Concomitant]
  15. EX GEL [Concomitant]

REACTIONS (2)
  - MALIGNANT NEOPLASM PROGRESSION [None]
  - NON-SMALL CELL LUNG CANCER METASTATIC [None]
